FAERS Safety Report 5857160-5 (Version None)
Quarter: 2008Q3

REPORT INFORMATION
  Report Type: 
  Country: None (occurrence: None)
  Receive Date: 20080825
  Receipt Date: 20080818
  Transmission Date: 20090109
  Serious: Yes (Other)
  Sender: FDA-Public Use
  Company Number: PHHY2008BR18419

PATIENT
  Age: 49 Year
  Sex: Female
  Weight: 44 kg

DRUGS (5)
  1. SANDOSTATIN LAR [Suspect]
     Indication: DIARRHOEA
     Dosage: 20 MG, UNK
     Route: 065
     Dates: start: 20080806
  2. SYNTHROID [Concomitant]
     Indication: HORMONE REPLACEMENT THERAPY
     Dosage: 100 UG, QD, AM
     Route: 065
     Dates: start: 20030101
  3. IMOSEC [Concomitant]
     Indication: DIARRHOEA
     Dosage: 4 TO 6 DF DAILY
     Route: 048
     Dates: start: 20040101
  4. QUESTRAN LIGHT [Concomitant]
     Indication: DIARRHOEA
     Dosage: 4 MG, UNK
     Route: 048
     Dates: start: 20040101
  5. PHARMATON COMPLEX [Concomitant]
     Dosage: 1 DF, QD
     Route: 048

REACTIONS (2)
  - DRUG INEFFECTIVE [None]
  - TACHYCARDIA [None]
